FAERS Safety Report 5208153-2 (Version None)
Quarter: 2007Q1

REPORT INFORMATION
  Report Type: 
  Country: None (occurrence: None)
  Receive Date: 20070115
  Receipt Date: 20070102
  Transmission Date: 20070707
  Serious: Yes (Hospitalization)
  Sender: FDA-Public Use
  Company Number: DE-PFIZER INC-2007003284

PATIENT
  Age: 29 Year
  Sex: Female

DRUGS (4)
  1. ZELDOX (CAPSULES) [Suspect]
     Indication: SCHIZOPHRENIA, PARANOID TYPE
     Dosage: DAILY DOSE:60MG
     Route: 048
  2. CLOZAPINE [Suspect]
     Indication: SCHIZOPHRENIA, PARANOID TYPE
     Dosage: DAILY DOSE:200MG
     Route: 048
     Dates: start: 20040604, end: 20040803
  3. HEXAL [Suspect]
     Indication: SCHIZOPHRENIA, PARANOID TYPE
     Dosage: DAILY DOSE:200MG
     Route: 048
     Dates: start: 20040604, end: 20040803
  4. FLUPENTIXOL [Concomitant]

REACTIONS (1)
  - HEPATIC ENZYME INCREASED [None]
